FAERS Safety Report 7110141-6 (Version None)
Quarter: 2010Q4

REPORT INFORMATION
  Report Type: 
  Country: None (occurrence: None)
  Receive Date: 20101118
  Receipt Date: 20101108
  Transmission Date: 20110411
  Serious: Yes (Other)
  Sender: FDA-Public Use
  Company Number: US-JNJFOC-20101104670

PATIENT
  Sex: Female

DRUGS (2)
  1. ELMIRON [Suspect]
     Indication: ILL-DEFINED DISORDER
     Route: 048
  2. UNKNOWN MEDICATION [Concomitant]
     Indication: HEADACHE
     Route: 065

REACTIONS (1)
  - POISONING [None]
